FAERS Safety Report 10496714 (Version 8)
Quarter: 2015Q4

REPORT INFORMATION
  Report Type: Report from Study
  Country: GB (occurrence: GB)
  Receive Date: 20141006
  Receipt Date: 20151005
  Transmission Date: 20160304
  Serious: Yes (Hospitalization)
  Sender: FDA-Public Use
  Company Number: GB-ROCHE-1468964

PATIENT
  Age: 41 Year
  Sex: Male
  Weight: 85.8 kg

DRUGS (12)
  1. ORAMORPH [Concomitant]
     Active Substance: MORPHINE SULFATE
     Route: 048
     Dates: start: 20130624
  2. CLOBAZAM [Concomitant]
     Active Substance: CLOBAZAM
     Indication: SEIZURE
  3. CLOBAZAM [Concomitant]
     Active Substance: CLOBAZAM
     Indication: ANXIETY
     Route: 048
     Dates: start: 20120807
  4. BEVACIZUMAB [Suspect]
     Active Substance: BEVACIZUMAB
     Indication: BRAIN NEOPLASM MALIGNANT
     Dosage: MOST RECENT DOSE ON 17/SEP/2014 WITH ACTAUL DOSE AT LAST ADMINISTRATION: 850 MG
     Route: 042
     Dates: start: 20120313
  5. RANITIDINE [Concomitant]
     Active Substance: RANITIDINE\RANITIDINE HYDROCHLORIDE
     Indication: PROPHYLAXIS
     Route: 048
     Dates: start: 20080714
  6. ADCAL - D3 [Concomitant]
     Route: 065
     Dates: start: 20130606
  7. DEXAMETHASONE. [Suspect]
     Active Substance: DEXAMETHASONE
     Indication: HEADACHE
     Route: 048
     Dates: start: 20080714
  8. EPILIM [Concomitant]
     Active Substance: VALPROATE SODIUM
     Indication: SEIZURE
     Route: 048
     Dates: start: 20090430
  9. LAMOTRIGINE. [Concomitant]
     Active Substance: LAMOTRIGINE
     Indication: SEIZURE
     Route: 048
     Dates: start: 20091221
  10. CLINDAMYCIN LOTION [Concomitant]
     Route: 061
     Dates: start: 20140902
  11. BEVACIZUMAB [Suspect]
     Active Substance: BEVACIZUMAB
     Dosage: MOST RECENT DOSE ON 01/APR/2015
     Route: 042
  12. TEMOZOLOMIDE. [Suspect]
     Active Substance: TEMOZOLOMIDE
     Indication: BRAIN NEOPLASM MALIGNANT
     Dosage: DAY 1-5, 150- 200 MG/M2, EVERY 4 WEEKS, UP TO 12 CYCLES, MOST RECENT DOSE ON 30/OCT/2012?ACTAUL DOSE
     Route: 048
     Dates: start: 20120313

REACTIONS (4)
  - Abscess [Recovered/Resolved with Sequelae]
  - Dermatitis acneiform [Recovered/Resolved with Sequelae]
  - Infected dermal cyst [Recovered/Resolved]
  - Cellulitis [Recovered/Resolved]

NARRATIVE: CASE EVENT DATE: 20140923
